FAERS Safety Report 24443446 (Version 1)
Quarter: 2024Q4

REPORT INFORMATION
  Report Type: Spontaneous
  Country: GB (occurrence: GB)
  Receive Date: 20241016
  Receipt Date: 20241016
  Transmission Date: 20250114
  Serious: Yes (Other)
  Sender: MSN LABORATORIES PRIVATE LIMITED
  Company Number: GB-MHRA-TPP15964761C5770798YC1728027719773

PATIENT

DRUGS (10)
  1. ROSUVASTATIN [Suspect]
     Active Substance: ROSUVASTATIN
     Indication: Ill-defined disorder
     Dosage: TAKE ONE DAILY
     Route: 065
     Dates: start: 20240823
  2. AMLODIPINE [Concomitant]
     Active Substance: AMLODIPINE BESYLATE
     Indication: Ill-defined disorder
     Dosage: 1 TABLET ONCE DAILY TO LOWER BLOOD PRESSURE
     Route: 065
     Dates: start: 20240320
  3. AMLODIPINE [Concomitant]
     Active Substance: AMLODIPINE BESYLATE
  4. ATORVASTATIN [Concomitant]
     Active Substance: ATORVASTATIN
     Indication: Ill-defined disorder
     Dosage: TAKE ONE AT NIGHT. IF THIS IS THE FIRST YEAR OF...
     Route: 065
     Dates: start: 20240103, end: 20240823
  5. ALENDRONIC ACID [Concomitant]
     Active Substance: ALENDRONIC ACID
     Indication: Ill-defined disorder
     Dosage: SWALLOW ONE TABLET WHOLE ONCE WEEKLY, FIRST THI...
     Route: 065
     Dates: start: 20231122
  6. DEXAMETHASONE [Concomitant]
     Active Substance: DEXAMETHASONE
     Indication: Ill-defined disorder
     Dosage: USE IN RIGHT EYE AS PER OPTHALMOLOGY
     Route: 065
     Dates: start: 20241003
  7. DULOXETINE [Concomitant]
     Active Substance: DULOXETINE
     Indication: Ill-defined disorder
     Dosage: TAKE ONE DAILY INITIALLY, AND REVIEW WITH GP ? ...
     Route: 065
     Dates: start: 20240208
  8. ESTRIOL [Concomitant]
     Active Substance: ESTRIOL
     Indication: Ill-defined disorder
     Dosage: APPLY AT NIGHT TWICE WEEKLY
     Route: 065
     Dates: start: 20240902
  9. ALBUTEROL [Concomitant]
     Active Substance: ALBUTEROL
     Indication: Ill-defined disorder
     Dosage: INHALE 2 DOSES UPTO FOUR TIMES A DAY TO RELIEVE...
     Dates: start: 20220329
  10. STEXEROL [Concomitant]
     Indication: Ill-defined disorder
     Dosage: MAINTENANCE THERAPY IN ADULTS: TAKE ONE TABLET ...
     Route: 065
     Dates: start: 20240521

REACTIONS (1)
  - Dermatitis bullous [Recovered/Resolved]
